FAERS Safety Report 16954671 (Version 2)
Quarter: 2019Q4

REPORT INFORMATION
  Report Type: Spontaneous
  Country: US (occurrence: US)
  Receive Date: 20191024
  Receipt Date: 20191114
  Transmission Date: 20200122
  Serious: Yes (Hospitalization)
  Sender: FDA-Public Use
  Company Number: NVSC2019US012070

PATIENT
  Age: 10 Year
  Sex: Male

DRUGS (1)
  1. CLINDAMYCIN. [Suspect]
     Active Substance: CLINDAMYCIN
     Indication: ARTHRITIS BACTERIAL
     Dosage: 600 MG, TID (3 WEEK COURSE)
     Route: 048

REACTIONS (3)
  - Arthritis reactive [Unknown]
  - Arthralgia [Unknown]
  - Rheumatic fever [Unknown]
